FAERS Safety Report 18243156 (Version 1)
Quarter: 2020Q3

REPORT INFORMATION
  Report Type: Spontaneous
  Country: JP (occurrence: JP)
  Receive Date: 20200908
  Receipt Date: 20200908
  Transmission Date: 20201103
  Serious: Yes (Hospitalization)
  Sender: FDA-Public Use
  Company Number: JP-SUN PHARMACEUTICAL INDUSTRIES LTD-2020RR-260208

PATIENT
  Age: 69 Year
  Sex: Male
  Weight: 64.3 kg

DRUGS (5)
  1. BEVACIZUMAB. [Suspect]
     Active Substance: BEVACIZUMAB
     Indication: RECTAL CANCER STAGE III
     Dosage: 5 MILLIGRAM/KILOGRAM (FIRST 90 MIN ? 60 MIN)
     Route: 065
  2. OXALIPLATIN. [Suspect]
     Active Substance: OXALIPLATIN
     Indication: RECTAL CANCER STAGE III
     Dosage: 85 MILLIGRAM/SQ. METER, UNK
     Route: 065
  3. CALCIUM FOLINAT [Suspect]
     Active Substance: LEUCOVORIN CALCIUM
     Indication: RECTAL CANCER STAGE III
     Dosage: 200 MILLIGRAM/SQ. METER, 1DOSE/1HOUR
     Route: 065
  4. 5?FLUOROURACIL [Suspect]
     Active Substance: FLUOROURACIL
     Indication: RECTAL CANCER STAGE III
     Dosage: 2400 MILLIGRAM/SQ. METER, 1DOSE/2 WEEKS, (46 HR)
     Route: 065
  5. IRINOTECAN [Suspect]
     Active Substance: IRINOTECAN
     Indication: RECTAL CANCER STAGE III
     Dosage: 150 MILLIGRAM/SQ. METER (2 HR)
     Route: 065

REACTIONS (1)
  - Hyponatraemia [Unknown]
